FAERS Safety Report 9491783 (Version 2)
Quarter: 2013Q3

REPORT INFORMATION
  Report Type: Not Available
  Country: US (occurrence: US)
  Receive Date: 20130919
  Receipt Date: 20130919
  Transmission Date: 20140515
  Serious: Yes (Other)
  Sender: FDA-Public Use
  Company Number: US-LUNDBECK-DKLU1083198

PATIENT
  Sex: Male

DRUGS (5)
  1. SABRIL (TABLET) [Suspect]
     Indication: COMPLEX PARTIAL SEIZURES
     Route: 048
     Dates: start: 20120307
  2. ONFI [Concomitant]
     Indication: PRODUCT USED FOR UNKNOWN INDICATION
  3. VALIUM [Concomitant]
     Indication: PRODUCT USED FOR UNKNOWN INDICATION
  4. VIMPAT [Concomitant]
     Indication: PRODUCT USED FOR UNKNOWN INDICATION
  5. LAMICTAL [Concomitant]
     Indication: PRODUCT USED FOR UNKNOWN INDICATION

REACTIONS (3)
  - Visual field defect [Not Recovered/Not Resolved]
  - Feeling abnormal [Unknown]
  - Fall [Unknown]
